FAERS Safety Report 5499335-3 (Version None)
Quarter: 2007Q4

REPORT INFORMATION
  Report Type: 
  Country: None (occurrence: None)
  Receive Date: 20071026
  Receipt Date: 20071015
  Transmission Date: 20080405
  Serious: Yes (Other)
  Sender: FDA-Public Use
  Company Number: US-TYCO HEALTHCARE/MALLINCKRODT-T200600103

PATIENT

DRUGS (2)
  1. OPTIMARK IN PLASTIC SYRINGES [Suspect]
     Indication: NUCLEAR MAGNETIC RESONANCE IMAGING
     Dosage: 11 ML, SINGLE
     Route: 042
     Dates: start: 20060314, end: 20060314
  2. SYNTHROID [Concomitant]
     Indication: THYROID DISORDER

REACTIONS (3)
  - LIP SWELLING [None]
  - RASH [None]
  - STEVENS-JOHNSON SYNDROME [None]
